FAERS Safety Report 23503831 (Version 1)
Quarter: 2024Q1

REPORT INFORMATION
  Report Type: Spontaneous
  Country: US (occurrence: None)
  Receive Date: 20240208
  Receipt Date: 20240208
  Transmission Date: 20240410
  Serious: Yes (Hospitalization)
  Sender: FDA-Public Use
  Company Number: None

PATIENT
  Sex: Female

DRUGS (1)
  1. CYCLOPHOSPHAMIDE [Suspect]
     Active Substance: CYCLOPHOSPHAMIDE
     Indication: Hypersensitivity vasculitis
     Dosage: TAKE 3 CAPSULES BY MOUTH ONCE DAILY FOR 2 WEEKS, THEN 5 CAPSULES ONCE DAILY
     Route: 048
     Dates: start: 202312

REACTIONS (2)
  - Fatigue [None]
  - Nausea [None]
